FAERS Safety Report 9098929 (Version 1)
Quarter: 2013Q1

REPORT INFORMATION
  Report Type: Spontaneous
  Country: US (occurrence: US)
  Receive Date: 20130213
  Receipt Date: 20130213
  Transmission Date: 20140127
  Serious: Yes (Hospitalization, Other)
  Sender: FDA-Public Use
  Company Number: US-BAYER-2013-016956

PATIENT
  Age: 46 Year
  Sex: Female

DRUGS (9)
  1. YAZ [Suspect]
  2. VENTOLIN HFA [Concomitant]
     Dosage: UNK
     Dates: start: 20100820
  3. HYDROCODONE W/ACETAMINOPHEN [Concomitant]
     Dosage: 5-325 MG
     Dates: start: 20100926
  4. IRON [Concomitant]
     Dosage: UNK
     Dates: start: 20100924
  5. LISINOPRIL [Concomitant]
     Dosage: UNK
     Dates: start: 20100924
  6. MIRAPEX [Concomitant]
  7. OMEPRAZOLE [Concomitant]
  8. HYDROCHLOROTHIAZIDE [Concomitant]
  9. LUPRON [Concomitant]

REACTIONS (3)
  - Deep vein thrombosis [None]
  - Pulmonary embolism [None]
  - Cholelithiasis [None]
